FAERS Safety Report 17355031 (Version 1)
Quarter: 2020Q1

REPORT INFORMATION
  Report Type: Report from Study
  Country: PT (occurrence: PT)
  Receive Date: 20200131
  Receipt Date: 20200131
  Transmission Date: 20200409
  Serious: Yes (Hospitalization)
  Sender: FDA-Public Use
  Company Number: PT-MYLANLABS-2020M1010931

PATIENT
  Age: 35 Year
  Sex: Female
  Weight: 66 kg

DRUGS (10)
  1. METOCLOPRAMIDE. [Concomitant]
     Active Substance: METOCLOPRAMIDE
     Dosage: ONGOING = CHECKED
     Route: 065
     Dates: start: 20180612
  2. PERTUZUMAB. [Suspect]
     Active Substance: PERTUZUMAB
     Indication: HER-2 POSITIVE BREAST CANCER
     Dosage: MOST RECENT DOSE PRIOR TO AE 15/JAN/2019
     Route: 042
     Dates: start: 20180605
  3. CLEMASTINE [Concomitant]
     Active Substance: CLEMASTINE
     Dosage: ONGOING = CHECKED
     Route: 065
     Dates: start: 20180605
  4. FOLIFER                            /00023601/ [Concomitant]
     Dosage: ONGOING = CHECKED
     Route: 065
  5. ONDANSETRON [Concomitant]
     Active Substance: ONDANSETRON
     Dosage: ONGOING = CHECKED
     Route: 065
     Dates: start: 20180605
  6. TRASTUZUMAB. [Suspect]
     Active Substance: TRASTUZUMAB
     Indication: HER-2 POSITIVE BREAST CANCER
     Dosage: MOST RECENT DOSE PRIOR TO AE 15/JAN/2019
     Route: 041
     Dates: start: 20180605
  7. TAXOL [Suspect]
     Active Substance: PACLITAXEL
     Indication: HER-2 POSITIVE BREAST CANCER
     Dosage: MOST RECENT DOSE PRIOR TO THE EVENT: 06/NOV/2018
     Route: 042
     Dates: start: 20180605, end: 20181030
  8. ONDANSETRON [Concomitant]
     Active Substance: ONDANSETRON
     Dosage: ONGOING = CHECKED
     Route: 065
     Dates: start: 20180612
  9. DEXAMETHASONE. [Concomitant]
     Active Substance: DEXAMETHASONE
     Dosage: ONGOING = CHECKED
     Route: 065
     Dates: start: 20180605
  10. RANITIDINE. [Concomitant]
     Active Substance: RANITIDINE
     Dosage: ONGOING = CHECKED
     Route: 065
     Dates: start: 20180605

REACTIONS (1)
  - Pulmonary embolism [Not Recovered/Not Resolved]

NARRATIVE: CASE EVENT DATE: 20190920
